FAERS Safety Report 8065515-6 (Version None)
Quarter: 2012Q1

REPORT INFORMATION
  Report Type: 
  Country: None (occurrence: None)
  Receive Date: 20120124
  Receipt Date: 20120118
  Transmission Date: 20120608
  Serious: Yes (Death, Life-Threatening)
  Sender: FDA-Public Use
  Company Number: JP-ASTELLAS-2011JP009514

PATIENT
  Age: 66 Year
  Sex: Male

DRUGS (2)
  1. PREDNISOLONE [Concomitant]
     Indication: MYASTHENIA GRAVIS
     Dosage: 15 MG, UNKNOWN/D
     Route: 048
  2. PROGRAF [Suspect]
     Indication: MYASTHENIA GRAVIS
     Dosage: 2 MG, UNKNOWN/D
     Route: 048

REACTIONS (6)
  - ENDOCARDITIS CANDIDA [None]
  - DISSEMINATED INTRAVASCULAR COAGULATION [None]
  - RUPTURED CEREBRAL ANEURYSM [None]
  - SEPTIC SHOCK [None]
  - CANDIDA SEPSIS [None]
  - CEREBRAL INFARCTION [None]
